FAERS Safety Report 5855609-5 (Version None)
Quarter: 2008Q3

REPORT INFORMATION
  Report Type: 
  Country: None (occurrence: None)
  Receive Date: 20080821
  Receipt Date: 20080812
  Transmission Date: 20090109
  Serious: Yes (Other)
  Sender: FDA-Public Use
  Company Number: 2008SP016467

PATIENT
  Age: 65 Year
  Sex: Male

DRUGS (2)
  1. MIRALAX [Suspect]
     Indication: DRUG USE FOR UNKNOWN INDICATION
     Dates: start: 20080812
  2. OMEGA 3 (CON.) [Concomitant]

REACTIONS (1)
  - ANAPHYLACTIC SHOCK [None]
